FAERS Safety Report 22974440 (Version 2)
Quarter: 2023Q4

REPORT INFORMATION
  Report Type: Other
  Country: FR (occurrence: None)
  Receive Date: 20230923
  Receipt Date: 20231101
  Transmission Date: 20240110
  Serious: Yes (Other)
  Sender: FDA-Public Use
  Company Number: FR-AMGEN-FRASP2023161337

PATIENT
  Age: 58 Year
  Sex: Male

DRUGS (5)
  1. ATEZOLIZUMAB [Suspect]
     Active Substance: ATEZOLIZUMAB
     Indication: Hepatocellular carcinoma
     Dosage: 1200 MILLIGRAM, Q3WK
     Route: 042
  2. BEVACIZUMAB [Suspect]
     Active Substance: BEVACIZUMAB
     Indication: Hepatocellular carcinoma
     Dosage: 15 MILLIGRAM PER KILOGRAM, Q3WK
     Route: 042
  3. SORAFENIB [Concomitant]
     Active Substance: SORAFENIB
     Indication: Hepatocellular carcinoma
  4. EVEROLIMUS [Concomitant]
     Active Substance: EVEROLIMUS
     Indication: Hepatocellular carcinoma
  5. LENVATINIB [Concomitant]
     Active Substance: LENVATINIB
     Indication: Hepatocellular carcinoma

REACTIONS (6)
  - Disease progression [Unknown]
  - Thrombocytopenia [Unknown]
  - Rash maculo-papular [Unknown]
  - Therapy non-responder [Unknown]
  - Gene mutation [Unknown]
  - Anaemia [Unknown]
